FAERS Safety Report 5475818-7 (Version None)
Quarter: 2007Q4

REPORT INFORMATION
  Report Type: 
  Country: None (occurrence: None)
  Receive Date: 20071003
  Receipt Date: 20071001
  Transmission Date: 20080405
  Serious: Yes (Other)
  Sender: FDA-Public Use
  Company Number: B0465498A

PATIENT
  Age: 61 Year
  Sex: Male

DRUGS (9)
  1. ZEFIX [Suspect]
     Indication: HEPATIC CIRRHOSIS
     Dosage: 100MG PER DAY
     Route: 048
     Dates: start: 20051227
  2. HEPSERA [Concomitant]
     Route: 048
     Dates: start: 20070222
  3. ZANTAC [Concomitant]
     Route: 048
  4. LIVACT [Concomitant]
     Indication: HEPATIC CIRRHOSIS
     Route: 048
  5. CHINESE MEDICINE [Concomitant]
     Route: 048
  6. FUROSEMIDE [Concomitant]
     Indication: HEPATIC CIRRHOSIS
     Route: 048
  7. ALDACTONE [Concomitant]
     Indication: HEPATIC CIRRHOSIS
     Route: 048
  8. FERROMIA [Concomitant]
     Route: 048
  9. MOHRUS TAPE [Concomitant]
     Route: 061

REACTIONS (3)
  - ALANINE AMINOTRANSFERASE INCREASED [None]
  - HBV DNA INCREASED [None]
  - HEPATIC FUNCTION ABNORMAL [None]
